FAERS Safety Report 19114077 (Version 4)
Quarter: 2021Q4

REPORT INFORMATION
  Report Type: Report from Study
  Country: GB (occurrence: GB)
  Receive Date: 20210408
  Receipt Date: 20211213
  Transmission Date: 20220303
  Serious: Yes (Other)
  Sender: FDA-Public Use
  Company Number: GB-PFIZER INC-2021349177

PATIENT
  Age: 60 Year
  Sex: Female

DRUGS (2)
  1. PALBOCICLIB [Suspect]
     Active Substance: PALBOCICLIB
     Indication: Breast cancer
     Dosage: CYCLIC (ONCE DAILY, 3 WEEKS ON/ 1 WEEK OFF EVERY 28 DAYS CYCLE
     Route: 048
     Dates: start: 20140324, end: 20210326
  2. LETROZOLE [Suspect]
     Active Substance: LETROZOLE
     Indication: Breast cancer
     Dosage: 2.5 MG, ONCE DAILY, CONTINUOUSLY
     Route: 048
     Dates: start: 20140324

REACTIONS (1)
  - Blindness [Recovering/Resolving]

NARRATIVE: CASE EVENT DATE: 20210207
